FAERS Safety Report 5595226-8 (Version None)
Quarter: 2008Q1

REPORT INFORMATION
  Report Type: 
  Country: None (occurrence: None)
  Receive Date: 20080117
  Receipt Date: 20080110
  Transmission Date: 20080703
  Serious: Yes (Hospitalization, Other)
  Sender: FDA-Public Use
  Company Number: US-PFIZER INC-2006039907

PATIENT
  Sex: Male

DRUGS (3)
  1. CELEBREX [Suspect]
     Indication: PAIN
     Dosage: FREQ:2 OR 3 TIMES
  2. BEXTRA [Suspect]
     Indication: PAIN
     Dosage: FREQ:2 OR 3 TIMES
  3. VIOXX [Suspect]
     Indication: ILL-DEFINED DISORDER

REACTIONS (6)
  - ARRHYTHMIA [None]
  - CEREBROVASCULAR ACCIDENT [None]
  - EYE DISORDER [None]
  - HEADACHE [None]
  - MYOCARDIAL INFARCTION [None]
  - SINUS BRADYCARDIA [None]
